FAERS Safety Report 4883795-2 (Version None)
Quarter: 2005Q4

REPORT INFORMATION
  Report Type: 
  Country: None (occurrence: None)
  Receive Date: 20051201
  Receipt Date: 20050926
  Transmission Date: 20060501
  Serious: No
  Sender: FDA-Public Use
  Company Number: 2005PV002491

PATIENT
  Age: 43 Year
  Sex: Female
  Weight: 114.3065 kg

DRUGS (10)
  1. BYETTA [Suspect]
     Indication: DIABETES MELLITUS NON-INSULIN-DEPENDENT
     Dosage: 5 MCG; BID; SC
     Route: 058
     Dates: start: 20050924
  2. FORTAMET [Concomitant]
  3. PREVACID [Concomitant]
  4. FUROSEMIDE [Concomitant]
  5. SYNTHROID [Concomitant]
  6. LESCOL [Concomitant]
  7. BENAZEPRIL HCL [Concomitant]
  8. ADIPEX [Concomitant]
  9. FORTAMET [Concomitant]
  10. NOVOLOG MIX 70/30 [Concomitant]

REACTIONS (12)
  - ABDOMINAL PAIN UPPER [None]
  - COLD SWEAT [None]
  - DECREASED APPETITE [None]
  - DEPRESSED LEVEL OF CONSCIOUSNESS [None]
  - DIARRHOEA [None]
  - DIZZINESS [None]
  - FATIGUE [None]
  - FEELING JITTERY [None]
  - HEADACHE [None]
  - MOOD SWINGS [None]
  - SENSATION OF HEAVINESS [None]
  - VOMITING [None]
